FAERS Safety Report 5523311-5 (Version None)
Quarter: 2007Q4

REPORT INFORMATION
  Report Type: 
  Country: None (occurrence: None)
  Receive Date: 20071121
  Receipt Date: 20071107
  Transmission Date: 20080405
  Serious: Yes (Hospitalization)
  Sender: FDA-Public Use
  Company Number: ES-GENENTECH-250925

PATIENT
  Sex: Male

DRUGS (3)
  1. RAPTIVA [Suspect]
     Indication: PSORIASIS
     Dosage: 0.7 UNK, 1/WEEK
     Route: 058
     Dates: start: 20060323, end: 20070109
  2. ZOLADEX [Suspect]
     Indication: PROSTATIC DISORDER
     Dosage: 1 UNK, 1/MONTH
     Dates: start: 20060801
  3. CASODEX [Suspect]
     Indication: PROSTATIC DISORDER
     Dosage: 1 UNK, QD
     Route: 048
     Dates: start: 20060801

REACTIONS (3)
  - ALANINE AMINOTRANSFERASE INCREASED [None]
  - ASPARTATE AMINOTRANSFERASE INCREASED [None]
  - GAMMA-GLUTAMYLTRANSFERASE INCREASED [None]
